FAERS Safety Report 8556271-3 (Version None)
Quarter: 2012Q3

REPORT INFORMATION
  Report Type: 
  Country: None (occurrence: None)
  Receive Date: 20120801
  Receipt Date: 20120730
  Transmission Date: 20120928
  Serious: No
  Sender: FDA-Public Use
  Company Number: US-PFIZER INC-2012151070

PATIENT
  Sex: Female
  Weight: 58.957 kg

DRUGS (4)
  1. LYRICA [Suspect]
     Indication: TRIGEMINAL NEURALGIA
     Dosage: TWO CAPSULES OF 25MG, 4 TIMES A DAY
     Route: 048
     Dates: start: 20120507
  2. HUMIRA [Suspect]
     Indication: ARTHRITIS
     Dosage: 40 MG, ONCE EVERY TWO WEEK
  3. LYRICA [Suspect]
     Indication: PAIN IN JAW
     Dosage: 150 MG, 1X/DAY
     Route: 048
  4. ZOLPIDEM TARTRATE [Concomitant]
     Indication: INSOMNIA
     Dosage: 10 MG, DAILY

REACTIONS (3)
  - TOOTHACHE [None]
  - FIBROMYALGIA [None]
  - INSOMNIA [None]
